FAERS Safety Report 13306226 (Version 1)
Quarter: 2017Q1

REPORT INFORMATION
  Report Type: Spontaneous
  Country: CA (occurrence: CA)
  Receive Date: 20170308
  Receipt Date: 20170308
  Transmission Date: 20170428
  Serious: Yes (Death, Other)
  Sender: FDA-Public Use
  Company Number: CA-MYLANLABS-2017M1014074

PATIENT

DRUGS (2)
  1. IDARUBICIN [Suspect]
     Active Substance: IDARUBICIN
     Indication: ACUTE PROMYELOCYTIC LEUKAEMIA
     Route: 065
  2. TRETINOIN. [Suspect]
     Active Substance: TRETINOIN
     Indication: ACUTE PROMYELOCYTIC LEUKAEMIA
     Route: 065

REACTIONS (6)
  - Brain herniation [Fatal]
  - Aspergillus infection [Recovering/Resolving]
  - Endocarditis [Recovering/Resolving]
  - Febrile neutropenia [Unknown]
  - Pancytopenia [Unknown]
  - Haemorrhage intracranial [Fatal]
